FAERS Safety Report 9268686 (Version 1)
Quarter: 2013Q2

REPORT INFORMATION
  Report Type: Spontaneous
  Country: US (occurrence: US)
  Receive Date: 20130502
  Receipt Date: 20130502
  Transmission Date: 20140414
  Serious: Yes (Hospitalization, Other)
  Sender: FDA-Public Use
  Company Number: US-ALEXION-A201300366

PATIENT
  Age: 20 Year
  Sex: Female
  Weight: 115.6 kg

DRUGS (26)
  1. SOLIRIS 300MG [Suspect]
     Indication: HAEMOLYTIC URAEMIC SYNDROME
     Dosage: 900 MG, QW X 4 WEEKS
     Route: 042
     Dates: start: 20121220, end: 20130110
  2. SOLIRIS 300MG [Suspect]
     Dosage: 900 MG, Q2W
     Route: 042
     Dates: start: 20130117
  3. SOLIRIS 300MG [Suspect]
     Dosage: 1200 MG, UNK
     Route: 042
  4. KENALOG [Concomitant]
     Dosage: APPLY QID TO AFFECTED AREA
  5. LONITEN [Concomitant]
     Dosage: 2.5 MG, QD
     Route: 048
  6. COLACE [Concomitant]
     Dosage: 100 MG, BID
     Route: 048
  7. PEPCID [Concomitant]
     Dosage: 20 MG, BID
     Route: 048
  8. PERCOCET [Concomitant]
     Dosage: 7.5-325 MG, Q4H PRN
     Route: 048
  9. TESSALON [Concomitant]
     Dosage: 100 MG, TID
     Route: 048
  10. ZOVIRAX [Concomitant]
     Dosage: APPLY TO AFFECTED AREA Q3H
     Route: 061
  11. DELTASONE [Concomitant]
     Dosage: 5 MG, BID
     Route: 048
  12. DELTASONE [Concomitant]
     Dosage: 5 MG, QD
     Route: 048
  13. DELTASONE [Concomitant]
     Dosage: 5 MG, Q OTHER DAY X 7D
     Route: 048
  14. EMLA [Concomitant]
     Dosage: APPLY TO AFFECTED AREA
     Route: 061
  15. SEROQUEL [Concomitant]
     Dosage: 400 MG, BID
     Route: 048
  16. PRINIVIL [Concomitant]
     Dosage: 20 MG, QD
     Route: 048
  17. LASIX [Concomitant]
     Dosage: 20 MG, TID
     Route: 048
  18. XANAX [Concomitant]
     Dosage: 1 MG, QD PRN
     Route: 048
  19. PHENERGAN [Concomitant]
     Indication: NAUSEA
     Dosage: 2ML TO AFFECTED AREA Q4H
     Route: 061
  20. PHENERGAN [Concomitant]
     Indication: VOMITING
  21. ZOFRAN [Concomitant]
     Indication: NAUSEA
     Dosage: 4 MG, TID PRN
     Route: 048
  22. ZOFRAN [Concomitant]
     Indication: VOMITING
  23. APRESOLINE [Concomitant]
     Dosage: 25 MG, QID
     Route: 048
  24. TOPROL XL [Concomitant]
     Dosage: 100 MG, QD
     Route: 048
  25. PROCARDIA XL [Concomitant]
     Dosage: 60 MG, BID
     Route: 048
  26. SODIUM CHLORIDE [Concomitant]

REACTIONS (3)
  - Pneumonia streptococcal [Recovered/Resolved]
  - Cellulitis [Recovered/Resolved]
  - Malaise [Unknown]
